FAERS Safety Report 7124549-6 (Version None)
Quarter: 2010Q4

REPORT INFORMATION
  Report Type: 
  Country: None (occurrence: None)
  Receive Date: 20101128
  Receipt Date: 20101027
  Transmission Date: 20110411
  Serious: Yes (Death)
  Sender: FDA-Public Use
  Company Number: GB-AMGEN-GBRCT2010001696

PATIENT

DRUGS (4)
  1. ETANERCEPT [Suspect]
     Indication: RHEUMATOID ARTHRITIS
     Dosage: 25 MG, 2 TIMES/WK
  2. CELEBREX [Concomitant]
     Dosage: UNKNOWN
  3. HYDROXYCHLOROQUINE SULFATE [Concomitant]
     Dosage: UNKNOWN
  4. METHOTREXATE [Concomitant]
     Dosage: UNKNOWN

REACTIONS (1)
  - METASTATIC NEOPLASM [None]
